FAERS Safety Report 8074715-0 (Version None)
Quarter: 2012Q1

REPORT INFORMATION
  Report Type: 
  Country: None (occurrence: None)
  Receive Date: 20120126
  Receipt Date: 20120119
  Transmission Date: 20120608
  Serious: Yes (Hospitalization, Other)
  Sender: FDA-Public Use
  Company Number: PL-ROCHE-1028707

PATIENT
  Sex: Female

DRUGS (10)
  1. MIRCERA [Suspect]
     Indication: ANAEMIA
     Route: 042
     Dates: start: 20111128
  2. FUROSEMIDUM [Concomitant]
     Route: 048
     Dates: start: 20111022
  3. AMLODIPINE [Concomitant]
     Indication: HYPERTENSION
     Route: 048
     Dates: start: 20111022
  4. DOXAZOSIN [Concomitant]
     Indication: HYPERTENSION
     Route: 048
     Dates: start: 20111022
  5. INSULIN [Concomitant]
     Indication: HYPERGLYCAEMIA
     Dates: start: 20111226
  6. SIMVASTATIN [Concomitant]
     Indication: HYPERCHOLESTEROLAEMIA
     Route: 048
     Dates: start: 20111022
  7. CALCIUM CARBONICUM [Concomitant]
     Indication: HYPERPHOSPHATAEMIA
     Route: 048
     Dates: start: 20111111
  8. ALFADIOL [Concomitant]
     Route: 048
     Dates: start: 20110111
  9. ASPIRIN [Concomitant]
     Route: 048
     Dates: start: 20111022
  10. COSMOFER [Concomitant]
     Dosage: DOSE FORM: AMPOULE
     Route: 042
     Dates: start: 20111107

REACTIONS (2)
  - PACKED RED BLOOD CELL TRANSFUSION [None]
  - ANAEMIA [None]
